FAERS Safety Report 5235524-0 (Version None)
Quarter: 2007Q1

REPORT INFORMATION
  Report Type: 
  Country: None (occurrence: None)
  Receive Date: 20070212
  Receipt Date: 20070129
  Transmission Date: 20070707
  Serious: Yes (Disabling, Other)
  Sender: FDA-Public Use
  Company Number: PHEH2007US01427

PATIENT
  Age: 27 Year
  Sex: Female

DRUGS (3)
  1. MOTRIN [Concomitant]
     Indication: INFLAMMATION
     Dosage: 800 MG, UNK
  2. FEMARA [Suspect]
     Indication: INFERTILITY
     Dosage: 2.5 MG, QD
     Dates: start: 20061227, end: 20061231
  3. PREDNISONE [Suspect]
     Indication: INFLAMMATION

REACTIONS (9)
  - ABASIA [None]
  - ARTHRALGIA [None]
  - ARTHRITIS [None]
  - FATIGUE [None]
  - HOT FLUSH [None]
  - MYALGIA [None]
  - MYOSITIS [None]
  - SWELLING [None]
  - WEIGHT INCREASED [None]
